FAERS Safety Report 5890190-6 (Version None)
Quarter: 2008Q3

REPORT INFORMATION
  Report Type: 
  Country: None (occurrence: None)
  Receive Date: 20080919
  Receipt Date: 20080909
  Transmission Date: 20090109
  Serious: Yes (Other)
  Sender: FDA-Public Use
  Company Number: CA-PFIZER INC-2008075812

PATIENT
  Age: 58 Year
  Sex: Male

DRUGS (6)
  1. CHANTIX [Suspect]
     Route: 048
     Dates: start: 20080701, end: 20080101
  2. AMITRIPTYLINE HCL [Concomitant]
  3. DILTIAZEM HCL [Concomitant]
  4. ALL OTHER THERAPEUTIC PRODUCTS [Concomitant]
  5. RIVASA [Concomitant]
  6. CLONAZEPAM [Concomitant]

REACTIONS (5)
  - ABDOMINAL PAIN UPPER [None]
  - ANOREXIA [None]
  - DEPRESSED MOOD [None]
  - THINKING ABNORMAL [None]
  - WEIGHT DECREASED [None]
